FAERS Safety Report 5891724-8 (Version None)
Quarter: 2008Q3

REPORT INFORMATION
  Report Type: 
  Country: None (occurrence: None)
  Receive Date: 20080922
  Receipt Date: 20080917
  Transmission Date: 20090109
  Serious: Yes (Hospitalization, Other)
  Sender: FDA-Public Use
  Company Number: US-BRISTOL-MYERS SQUIBB COMPANY-14308035

PATIENT
  Age: 51 Year
  Sex: Female
  Weight: 48 kg

DRUGS (2)
  1. CETUXIMAB [Suspect]
     Indication: NON-SMALL CELL LUNG CANCER
     Dosage: 250 MG/M2 = 375 MG. PATIENT WILL RESTART CHEMO ON 26AUG08. INITIATED ON 15-AUG-2007
     Route: 042
     Dates: start: 20080728, end: 20080728
  2. PEMETREXED DISODIUM [Suspect]
     Indication: NON-SMALL CELL LUNG CANCER
     Dosage: 500MG/M2 = 750 MG. PATIENT WILL RESTART CHEMO ON 26AUG08.INITIATED ON 14AUG07
     Route: 042
     Dates: start: 20080714, end: 20080714

REACTIONS (3)
  - CATARACT [None]
  - DYSPNOEA [None]
  - DYSPNOEA EXERTIONAL [None]
